FAERS Safety Report 5329040-5 (Version None)
Quarter: 2007Q2

REPORT INFORMATION
  Report Type: 
  Country: None (occurrence: None)
  Receive Date: 20070518
  Receipt Date: 20070507
  Transmission Date: 20071010
  Serious: Yes (Other)
  Sender: FDA-Public Use
  Company Number: US-PFIZER INC-2005132311

PATIENT
  Sex: Female

DRUGS (11)
  1. NEURONTIN [Suspect]
     Indication: DIABETIC NEUROPATHY
  2. NEURONTIN [Suspect]
     Indication: NEUROPATHY PERIPHERAL
  3. NEURONTIN [Suspect]
     Indication: RESTLESS LEGS SYNDROME
  4. XANAX [Suspect]
  5. ALCOHOL [Suspect]
  6. ATENOLOL [Concomitant]
  7. PREMARIN [Concomitant]
  8. INSULIN [Concomitant]
  9. COZAAR [Concomitant]
  10. PAXIL [Concomitant]
  11. ZOCOR [Concomitant]

REACTIONS (13)
  - ANXIETY [None]
  - BLOOD GLUCOSE INCREASED [None]
  - DEPRESSION [None]
  - DRUG INEFFECTIVE [None]
  - GLUCOSE URINE [None]
  - INTENTIONAL OVERDOSE [None]
  - PERSONALITY DISORDER [None]
  - RESPIRATORY DEPRESSION [None]
  - SOCIAL PHOBIA [None]
  - SOMNOLENCE [None]
  - SUICIDAL IDEATION [None]
  - SUICIDE ATTEMPT [None]
  - VISUAL ACUITY REDUCED [None]
